FAERS Safety Report 17726064 (Version 8)
Quarter: 2020Q4

REPORT INFORMATION
  Report Type: Report from Study
  Country: US (occurrence: US)
  Receive Date: 20200429
  Receipt Date: 20201230
  Transmission Date: 20210113
  Serious: Yes (Hospitalization)
  Sender: FDA-Public Use
  Company Number: NVSC2020US116346

PATIENT
  Age: 74 Year
  Sex: Male

DRUGS (2)
  1. ENTRESTO [Suspect]
     Active Substance: SACUBITRIL\VALSARTAN
     Indication: PRODUCT USED FOR UNKNOWN INDICATION
     Dosage: 1 DF, BID
     Route: 048
     Dates: start: 2019
  2. ONGLYZA [Concomitant]
     Active Substance: SAXAGLIPTIN HYDROCHLORIDE
     Indication: PRODUCT USED FOR UNKNOWN INDICATION
     Dosage: UNK
     Route: 065

REACTIONS (10)
  - Wheezing [Recovered/Resolved]
  - Exposure to SARS-CoV-2 [Unknown]
  - Emotional disorder [Unknown]
  - Cough [Recovered/Resolved]
  - Chronic obstructive pulmonary disease [Recovering/Resolving]
  - Tremor [Unknown]
  - Infection [Unknown]
  - COVID-19 [Unknown]
  - Dizziness [Recovered/Resolved]
  - Dysgraphia [Unknown]

NARRATIVE: CASE EVENT DATE: 20200518
